FAERS Safety Report 5386484-3 (Version None)
Quarter: 2007Q3

REPORT INFORMATION
  Report Type: 
  Country: None (occurrence: None)
  Receive Date: 20070713
  Receipt Date: 20070709
  Transmission Date: 20080115
  Serious: Yes (Disabling, Other)
  Sender: FDA-Public Use
  Company Number: GB-JNJFOC-20070604839

PATIENT
  Sex: Male

DRUGS (3)
  1. TOPAMAX [Suspect]
     Indication: EPILEPSY
  2. OXCARBAZEPINE [Concomitant]
     Indication: EPILEPSY
  3. LEVETIRACETAM [Concomitant]
     Indication: EPILEPSY

REACTIONS (1)
  - CATARACT [None]
